FAERS Safety Report 5766928-5 (Version None)
Quarter: 2008Q2

REPORT INFORMATION
  Report Type: 
  Country: None (occurrence: None)
  Receive Date: 20080606
  Receipt Date: 20080522
  Transmission Date: 20081010
  Serious: Yes (Disabling)
  Sender: FDA-Public Use
  Company Number: 2008S1009216

PATIENT
  Age: 20 Year
  Sex: Male

DRUGS (1)
  1. CLARITHROMYCIN [Suspect]
     Indication: LOWER RESPIRATORY TRACT INFECTION
     Dosage: 500 MG; ORAL; TWICE A DAY
     Route: 048
     Dates: start: 20080401, end: 20080408

REACTIONS (2)
  - PARANOIA [None]
  - PSYCHOTIC DISORDER [None]
